FAERS Safety Report 4884784-4 (Version None)
Quarter: 2006Q1

REPORT INFORMATION
  Report Type: 
  Country: None (occurrence: None)
  Receive Date: 20060119
  Receipt Date: 20060106
  Transmission Date: 20060701
  Serious: Yes (Other)
  Sender: FDA-Public Use
  Company Number: AU-NOVOPROD-249795

PATIENT
  Age: 55 Year
  Sex: Male

DRUGS (2)
  1. NOVORAPID FLEXPEN [Suspect]
     Indication: DIABETES MELLITUS
     Dosage: 18 (6+4+8)
  2. LANTUS [Concomitant]
     Dosage: 26-28

REACTIONS (1)
  - ATRIAL FIBRILLATION [None]
